FAERS Safety Report 7404359-2 (Version None)
Quarter: 2011Q2

REPORT INFORMATION
  Report Type: 
  Country: None (occurrence: None)
  Receive Date: 20110408
  Receipt Date: 20110404
  Transmission Date: 20111010
  Serious: Yes (Hospitalization)
  Sender: FDA-Public Use
  Company Number: DE-ABBOTT-10P-062-0687519-00

PATIENT
  Sex: Female

DRUGS (22)
  1. MOBIC [Concomitant]
     Indication: PRODUCT USED FOR UNKNOWN INDICATION
  2. CORTISON [Concomitant]
     Indication: PRODUCT USED FOR UNKNOWN INDICATION
  3. HUMIRA [Suspect]
     Indication: ANKYLOSING SPONDYLITIS
     Route: 058
     Dates: start: 20110316
  4. MUSARIL [Concomitant]
     Indication: PRODUCT USED FOR UNKNOWN INDICATION
  5. NOVALGIN [Concomitant]
     Indication: PRODUCT USED FOR UNKNOWN INDICATION
  6. LEVOTHYROXINE SODIUM [Concomitant]
     Indication: PRODUCT USED FOR UNKNOWN INDICATION
  7. DRUG FOR PANIC ATTACK [Concomitant]
     Indication: PANIC ATTACK
  8. VALDOXAN 25 [Concomitant]
     Indication: PRODUCT USED FOR UNKNOWN INDICATION
  9. BALDRIPARAN [Concomitant]
     Indication: PRODUCT USED FOR UNKNOWN INDICATION
  10. STINOX [Concomitant]
     Indication: PRODUCT USED FOR UNKNOWN INDICATION
  11. HUMIRA [Suspect]
     Indication: RHEUMATOID ARTHRITIS
     Route: 058
     Dates: start: 20100330, end: 20110127
  12. VALORON [Concomitant]
     Indication: PRODUCT USED FOR UNKNOWN INDICATION
  13. RESTASIS [Concomitant]
     Indication: PRODUCT USED FOR UNKNOWN INDICATION
  14. MAGNESIUM [Concomitant]
     Indication: PRODUCT USED FOR UNKNOWN INDICATION
  15. FOLIC ACID [Concomitant]
     Indication: PRODUCT USED FOR UNKNOWN INDICATION
  16. INSIDON [Concomitant]
     Indication: PRODUCT USED FOR UNKNOWN INDICATION
  17. DUSPATAL [Concomitant]
     Indication: PRODUCT USED FOR UNKNOWN INDICATION
  18. MELOXIAM 7.5 [Concomitant]
     Indication: PRODUCT USED FOR UNKNOWN INDICATION
  19. SERTRALIN [Concomitant]
     Indication: PRODUCT USED FOR UNKNOWN INDICATION
  20. LACTRASE [Concomitant]
     Indication: PRODUCT USED FOR UNKNOWN INDICATION
  21. NEXIUM [Concomitant]
     Indication: PRODUCT USED FOR UNKNOWN INDICATION
  22. LEFAX [Concomitant]
     Indication: PRODUCT USED FOR UNKNOWN INDICATION

REACTIONS (13)
  - ORAL FUNGAL INFECTION [None]
  - PAIN [None]
  - DYSGEUSIA [None]
  - COLITIS COLLAGENOUS [None]
  - FLATULENCE [None]
  - DIARRHOEA [None]
  - OROPHARYNGEAL PAIN [None]
  - ABDOMINAL PAIN UPPER [None]
  - THROAT IRRITATION [None]
  - CHEST DISCOMFORT [None]
  - ALOPECIA [None]
  - DYSPHAGIA [None]
  - FATIGUE [None]
